FAERS Safety Report 4499157-6 (Version None)
Quarter: 2004Q3

REPORT INFORMATION
  Report Type: 
  Country: None (occurrence: None)
  Receive Date: 20040927
  Receipt Date: 20040602
  Transmission Date: 20050211
  Serious: No
  Sender: FDA-Public Use
  Company Number: USA040669151

PATIENT
  Age: 13 Year
  Sex: Male
  Weight: 30 kg

DRUGS (2)
  1. STRATTERA [Suspect]
     Indication: ATTENTION DEFICIT/HYPERACTIVITY DISORDER
     Dosage: 40 MG/1 IN THE MORNING
     Dates: start: 20031201
  2. ADDERALL 10 [Concomitant]

REACTIONS (3)
  - ABNORMAL BEHAVIOUR [None]
  - MIGRAINE [None]
  - VOMITING [None]
